FAERS Safety Report 7343128-9 (Version None)
Quarter: 2011Q1

REPORT INFORMATION
  Report Type: 
  Country: None (occurrence: None)
  Receive Date: 20110310
  Receipt Date: 20110304
  Transmission Date: 20110831
  Serious: No
  Sender: FDA-Public Use
  Company Number: US-PFIZER INC-2011009291

PATIENT
  Sex: Female

DRUGS (2)
  1. ESTRING [Suspect]
     Indication: VULVOVAGINAL DRYNESS
     Dosage: 2 MG, UNK
     Route: 067
     Dates: start: 20101201, end: 20101208
  2. DIGOXIN [Concomitant]
     Indication: HEART RATE INCREASED
     Dosage: 0.25 MG, 1X/DAY
     Route: 048

REACTIONS (3)
  - VAGINAL DISORDER [None]
  - RASH [None]
  - VAGINAL DISCHARGE [None]
